FAERS Safety Report 14965246 (Version 1)
Quarter: 2018Q2

REPORT INFORMATION
  Report Type: Spontaneous
  Country: US (occurrence: US)
  Receive Date: 20180601
  Receipt Date: 20180601
  Transmission Date: 20180711
  Serious: Yes (Other)
  Sender: FDA-Public Use
  Company Number: US-BIOGEN-2008BI035058

PATIENT
  Age: 33 Year
  Sex: Female

DRUGS (2)
  1. TYSABRI [Suspect]
     Active Substance: NATALIZUMAB
     Indication: MULTIPLE SCLEROSIS
     Dosage: INFUSED OVER 1 HOUR
     Route: 042
     Dates: start: 20071211, end: 20080918
  2. TYSABRI [Suspect]
     Active Substance: NATALIZUMAB
     Route: 065
     Dates: end: 20081117

REACTIONS (7)
  - Arthralgia [Not Recovered/Not Resolved]
  - Drug specific antibody present [Unknown]
  - Speech disorder [Not Recovered/Not Resolved]
  - Hypersensitivity [Recovered/Resolved]
  - Hypoaesthesia [Not Recovered/Not Resolved]
  - Infusion related reaction [Recovered/Resolved]
  - Amnesia [Not Recovered/Not Resolved]

NARRATIVE: CASE EVENT DATE: 200807
